FAERS Safety Report 17211489 (Version 1)
Quarter: 2019Q4

REPORT INFORMATION
  Report Type: Spontaneous
  Country: US (occurrence: US)
  Receive Date: 20191229
  Receipt Date: 20191229
  Transmission Date: 20200122
  Serious: Yes (Other)
  Sender: FDA-Public Use
  Company Number: US-UNICHEM PHARMACEUTICALS (USA) INC-UCM201912-000920

PATIENT
  Age: 16 Year
  Sex: Male

DRUGS (2)
  1. GENESIS - ENERGY DRINK [Suspect]
     Active Substance: DIETARY SUPPLEMENT
     Indication: FATIGUE
     Dosage: ENERGY DRINK
     Dates: start: 201311
  2. DIVALPROEX SODIUM. [Suspect]
     Active Substance: DIVALPROEX SODIUM
     Indication: GENERALISED TONIC-CLONIC SEIZURE
     Dosage: AT BED TIME
     Route: 048

REACTIONS (3)
  - Drug level decreased [Recovered/Resolved]
  - Drug interaction [Recovered/Resolved]
  - Seizure [Recovered/Resolved]

NARRATIVE: CASE EVENT DATE: 201401
